FAERS Safety Report 9929906 (Version 2)
Quarter: 2014Q2

REPORT INFORMATION
  Report Type: Spontaneous
  Country: US (occurrence: US)
  Receive Date: 20140227
  Receipt Date: 20140423
  Transmission Date: 20141212
  Serious: Yes (Other)
  Sender: FDA-Public Use
  Company Number: US-ELI_LILLY_AND_COMPANY-US201402005733

PATIENT
  Sex: Female

DRUGS (2)
  1. HUMALOG LISPRO [Suspect]
     Indication: TYPE 1 DIABETES MELLITUS
     Dosage: UNK UNK, PRN
     Route: 058
     Dates: start: 1999
  2. HUMALOG LISPRO [Suspect]
     Dosage: UNK
     Route: 065

REACTIONS (3)
  - Failed induction of labour [Unknown]
  - Maternal exposure during pregnancy [Recovered/Resolved]
  - Hypersensitivity [Unknown]
